FAERS Safety Report 6447553-X (Version None)
Quarter: 2009Q4

REPORT INFORMATION
  Report Type: 
  Country: None (occurrence: None)
  Receive Date: 20091119
  Receipt Date: 20090625
  Transmission Date: 20100525
  Serious: Yes (Hospitalization)
  Sender: FDA-Public Use
  Company Number: US-AMGEN-KDL309718

PATIENT
  Sex: Female
  Weight: 117.1 kg

DRUGS (2)
  1. ENBREL [Suspect]
     Indication: RHEUMATOID ARTHRITIS
     Route: 058
     Dates: start: 20080101, end: 20090501
  2. PREDNISONE [Suspect]
     Dates: start: 20070901

REACTIONS (5)
  - DYSPNOEA [None]
  - EAR INFECTION [None]
  - PNEUMONIA [None]
  - SINUSITIS [None]
  - UPPER RESPIRATORY TRACT INFECTION [None]
